FAERS Safety Report 10921140 (Version 1)
Quarter: 2015Q1

REPORT INFORMATION
  Report Type: Spontaneous
  Country: JP (occurrence: None)
  Receive Date: 20150312
  Receipt Date: 20150312
  Transmission Date: 20150721
  Serious: Yes (Disabling, Other)
  Sender: FDA-Public Use
  Company Number: 2014-20992

PATIENT
  Age: 81 Year
  Sex: Female

DRUGS (1)
  1. EYLEA [Suspect]
     Active Substance: AFLIBERCEPT
     Indication: AGE-RELATED MACULAR DEGENERATION
     Dosage: FIRST DOSE ON THE FIRST EYE
     Route: 031
     Dates: start: 20131212, end: 20131212

REACTIONS (3)
  - Off label use [None]
  - Retinal pigment epithelial tear [None]
  - Choroidal neovascularisation [None]

NARRATIVE: CASE EVENT DATE: 2014
